FAERS Safety Report 13757248 (Version 1)
Quarter: 2017Q3

REPORT INFORMATION
  Report Type: Spontaneous
  Country: US (occurrence: US)
  Receive Date: 20170716
  Receipt Date: 20170716
  Transmission Date: 20171127
  Serious: Yes (Disabling)
  Sender: FDA-Public Use
  Company Number: None

PATIENT
  Age: 55 Year
  Sex: Female
  Weight: 108 kg

DRUGS (6)
  1. OTEZLA [Suspect]
     Active Substance: APREMILAST
     Indication: PSORIATIC ARTHROPATHY
     Dosage: ?          OTHER STRENGTH:MG;QUANTITY:1 TABLET(S);?
     Route: 048
     Dates: start: 20170622, end: 20170708
  2. ALBUTEROL INHALER [Concomitant]
     Active Substance: ALBUTEROL
  3. TRAMADOL. [Concomitant]
     Active Substance: TRAMADOL
  4. VITAMIN D [Concomitant]
     Active Substance: CHOLECALCIFEROL
  5. OTEZLA [Suspect]
     Active Substance: APREMILAST
     Indication: PSORIASIS
     Dosage: ?          OTHER STRENGTH:MG;QUANTITY:1 TABLET(S);?
     Route: 048
     Dates: start: 20170622, end: 20170708
  6. LISINOPRIL. [Concomitant]
     Active Substance: LISINOPRIL

REACTIONS (6)
  - Skin discolouration [None]
  - Rash [None]
  - Pruritus [None]
  - Eye swelling [None]
  - Burning sensation [None]
  - Swelling face [None]

NARRATIVE: CASE EVENT DATE: 20170707
